FAERS Safety Report 6471569-0 (Version None)
Quarter: 2009Q4

REPORT INFORMATION
  Report Type: 
  Country: None (occurrence: None)
  Receive Date: 20091203
  Receipt Date: 20091125
  Transmission Date: 20100525
  Serious: Yes (Other)
  Sender: FDA-Public Use
  Company Number: DE-TEVA-216281ISR

PATIENT
  Sex: Male

DRUGS (1)
  1. COPAXONE [Suspect]
     Indication: MULTIPLE SCLEROSIS
     Route: 058
     Dates: start: 20090301

REACTIONS (10)
  - CHEST DISCOMFORT [None]
  - CHILLS [None]
  - COLITIS ULCERATIVE [None]
  - DYSPNOEA [None]
  - EYE OEDEMA [None]
  - FLUSHING [None]
  - HAEMATOCHEZIA [None]
  - NASAL OEDEMA [None]
  - PYREXIA [None]
  - THROAT TIGHTNESS [None]
